FAERS Safety Report 12114613 (Version 1)
Quarter: 2016Q1

REPORT INFORMATION
  Report Type: Spontaneous
  Country: US (occurrence: US)
  Receive Date: 20160225
  Receipt Date: 20160225
  Transmission Date: 20160526
  Serious: No
  Sender: FDA-Public Use
  Company Number: PHEH2016US004378

PATIENT
  Age: 72 Year
  Sex: Female

DRUGS (1)
  1. ZYKADIA [Suspect]
     Active Substance: CERITINIB
     Indication: LUNG NEOPLASM MALIGNANT
     Dosage: 5 DF, QD
     Route: 048
     Dates: start: 201601

REACTIONS (3)
  - Increased appetite [Unknown]
  - Alopecia [Unknown]
  - Weight increased [Unknown]

NARRATIVE: CASE EVENT DATE: 201601
